FAERS Safety Report 8861971 (Version 2)
Quarter: 2012Q4

REPORT INFORMATION
  Report Type: 
  Country: DE (occurrence: DE)
  Receive Date: 20121025
  Receipt Date: 20121106
  Transmission Date: 20130627
  Serious: Yes (Life-Threatening, Hospitalization)
  Sender: FDA-Public Use
  Company Number: DE-JNJFOC-20121009801

PATIENT
  Age: 67 Year
  Sex: Male

DRUGS (7)
  1. REMICADE [Suspect]
     Indication: ANKYLOSING SPONDYLITIS
     Dosage: total dose of 300 mg for every 6-8 weeks
     Route: 042
     Dates: start: 200008, end: 201204
  2. GOLIMUMAB [Suspect]
     Indication: ANKYLOSING SPONDYLITIS
     Route: 058
     Dates: start: 201007
  3. PREDNISOLONE [Concomitant]
     Dosage: 5-10 mg
     Route: 065
  4. METHOTREXATE [Concomitant]
     Route: 065
     Dates: start: 2012
  5. METHOTREXATE [Concomitant]
     Route: 065
  6. METHOTREXATE [Concomitant]
     Route: 065
     Dates: start: 200909
  7. SULFASALAZINE [Concomitant]
     Route: 065

REACTIONS (2)
  - Bladder cancer [Recovering/Resolving]
  - Drug effect incomplete [Unknown]
